FAERS Safety Report 6942240-3 (Version None)
Quarter: 2010Q3

REPORT INFORMATION
  Report Type: 
  Country: None (occurrence: None)
  Receive Date: 20100826
  Receipt Date: 20100817
  Transmission Date: 20110219
  Serious: Yes (Other)
  Sender: FDA-Public Use
  Company Number: US-JNJFOC-20051105949

PATIENT
  Age: 9 Year
  Sex: Female

DRUGS (8)
  1. REMICADE [Suspect]
     Indication: COLITIS ULCERATIVE
     Route: 042
  2. REMICADE [Suspect]
     Dosage: WEEK 6
     Route: 042
  3. REMICADE [Suspect]
     Dosage: WEEK 0
     Route: 042
  4. REMICADE [Suspect]
     Dosage: WEEK 2
     Route: 042
  5. REMICADE [Suspect]
     Route: 042
  6. MERCAPTOPURINE [Concomitant]
     Indication: COLITIS ULCERATIVE
  7. ASACOL [Concomitant]
     Indication: COLITIS ULCERATIVE
  8. PREDNISONE [Concomitant]
     Indication: COLITIS ULCERATIVE

REACTIONS (2)
  - INFUSION RELATED REACTION [None]
  - NEPHROBLASTOMA [None]
